FAERS Safety Report 7542990-4 (Version None)
Quarter: 2011Q2

REPORT INFORMATION
  Report Type: 
  Country: None (occurrence: None)
  Receive Date: 20110613
  Receipt Date: 20110531
  Transmission Date: 20111010
  Serious: Yes (Other)
  Sender: FDA-Public Use
  Company Number: PHHY2011BR47578

PATIENT
  Sex: Female

DRUGS (4)
  1. CLOPIDOGREL [Concomitant]
     Dosage: 75 MG, UNK
  2. SIMVASTATIN [Concomitant]
     Dosage: 50 MG, UNK
  3. DIOVAN [Suspect]
     Dosage: 1 DF DAILY
  4. LEVOTHYROXINE SODIUM [Concomitant]
     Dosage: 50 UG, UNK

REACTIONS (1)
  - DIABETIC EYE DISEASE [None]
